FAERS Safety Report 23746815 (Version 4)
Quarter: 2024Q2

REPORT INFORMATION
  Report Type: Spontaneous
  Country: US (occurrence: US)
  Receive Date: 20240416
  Receipt Date: 20240626
  Transmission Date: 20240715
  Serious: Yes (Other)
  Sender: FDA-Public Use
  Company Number: US-002147023-NVSC2024US079026

PATIENT

DRUGS (2)
  1. SIMULECT [Suspect]
     Active Substance: BASILIXIMAB
     Indication: Product used for unknown indication
     Dosage: UNK, BID
     Route: 065
  2. SIMULECT [Suspect]
     Active Substance: BASILIXIMAB
     Dosage: UNK (20MG 6ML VIAL)
     Route: 065

REACTIONS (1)
  - Transplant rejection [Unknown]
